FAERS Safety Report 23720826 (Version 1)
Quarter: 2024Q2

REPORT INFORMATION
  Report Type: Spontaneous
  Country: US (occurrence: US)
  Receive Date: 20240409
  Receipt Date: 20240409
  Transmission Date: 20240716
  Serious: No
  Sender: FDA-Public Use
  Company Number: US-ABBVIE-5705238

PATIENT
  Sex: Female
  Weight: 67 kg

DRUGS (3)
  1. SYNTHROID [Suspect]
     Active Substance: LEVOTHYROXINE SODIUM
     Indication: Hypothyroidism
     Route: 048
  2. TIROSINT [Concomitant]
     Active Substance: LEVOTHYROXINE SODIUM
     Indication: Hypothyroidism
  3. COMBIPATCH [Suspect]
     Active Substance: ESTRADIOL\NORETHINDRONE ACETATE
     Indication: Osteoporosis
     Dosage: 0.05/0.14 MILLIGRAM?COMBIPATCH? TRANSDERMAL SYSTEM
     Route: 062

REACTIONS (8)
  - Headache [Recovered/Resolved]
  - Feeling abnormal [Unknown]
  - Bone density abnormal [Unknown]
  - Dysmenorrhoea [Unknown]
  - Postmenopausal haemorrhage [Unknown]
  - Breast tenderness [Unknown]
  - Hot flush [Unknown]
  - Haemorrhage [Unknown]
